FAERS Safety Report 15461261 (Version 3)
Quarter: 2019Q1

REPORT INFORMATION
  Report Type: Spontaneous
  Country: US (occurrence: US)
  Receive Date: 20181003
  Receipt Date: 20190104
  Transmission Date: 20190417
  Serious: No
  Sender: FDA-Public Use
  Company Number: US-SA-2018SA269708

PATIENT
  Age: 55 Year
  Sex: Female

DRUGS (1)
  1. AUBAGIO [Suspect]
     Active Substance: TERIFLUNOMIDE
     Indication: MULTIPLE SCLEROSIS
     Dosage: 14 MG, QD
     Route: 048
     Dates: start: 20180827, end: 20180920

REACTIONS (5)
  - Liver function test abnormal [Unknown]
  - Dyspnoea [Unknown]
  - Cyst [Unknown]
  - Migraine [Unknown]
  - Paraesthesia [Unknown]

NARRATIVE: CASE EVENT DATE: 20180907
